FAERS Safety Report 9120412 (Version 1)
Quarter: 2013Q1

REPORT INFORMATION
  Report Type: Spontaneous
  Country: FR (occurrence: FR)
  Receive Date: 20130226
  Receipt Date: 20130226
  Transmission Date: 20140127
  Serious: Yes (Hospitalization)
  Sender: FDA-Public Use
  Company Number: FR-ROCHE-1191802

PATIENT
  Age: 74 Year
  Sex: Female

DRUGS (12)
  1. ZELBORAF [Suspect]
     Indication: METASTATIC MALIGNANT MELANOMA
     Route: 048
     Dates: start: 20121019, end: 20121029
  2. SPECIAFOLDINE [Concomitant]
  3. PREVISCAN [Concomitant]
  4. PROZAC [Concomitant]
  5. GABAPENTIN [Concomitant]
  6. MODOPAR [Concomitant]
  7. DOMPERIDONE [Concomitant]
  8. OMEPRAZOLE [Concomitant]
  9. DEBRIDAT [Concomitant]
  10. SINGULAIR [Concomitant]
  11. LEXOMIL [Concomitant]
  12. CORDARONE [Concomitant]

REACTIONS (5)
  - Erythema multiforme [Recovering/Resolving]
  - Hyperkeratosis [Recovering/Resolving]
  - Dermatitis acneiform [Recovering/Resolving]
  - Photosensitivity reaction [Recovering/Resolving]
  - General physical health deterioration [Recovering/Resolving]
